FAERS Safety Report 16940884 (Version 1)
Quarter: 2019Q4

REPORT INFORMATION
  Report Type: Spontaneous
  Country: GB (occurrence: GB)
  Receive Date: 20191021
  Receipt Date: 20191021
  Transmission Date: 20200122
  Serious: Yes (Other)
  Sender: FDA-Public Use
  Company Number: GB-MYLANLABS-2019M1098071

PATIENT
  Age: 89 Year
  Sex: Female
  Weight: 70 kg

DRUGS (7)
  1. EFUDIX [Concomitant]
     Active Substance: FLUOROURACIL
     Dosage: UNK, APPLY 1-2 TIMES A DAY FOR 3-4 WEEKS
     Dates: start: 20180604
  2. DIAZEPAM. [Concomitant]
     Active Substance: DIAZEPAM
     Dosage: UNK, TAKE 1, 2 OR 3 AT NIGHT ONLY
     Dates: start: 20190525, end: 20190601
  3. COLECALCIFEROL [Concomitant]
     Active Substance: CHOLECALCIFEROL
     Dosage: 1 DOSAGE FORM, QD, MORNING (STOP CALCIUM AND ...
     Dates: start: 20190220
  4. OMEPRAZOLE. [Concomitant]
     Active Substance: OMEPRAZOLE
     Dosage: 1 DOSAGE FORM, QD, IF TAKING ARTHROTEC
     Dates: start: 20190808
  5. RANITIDINE. [Suspect]
     Active Substance: RANITIDINE
     Indication: PRODUCT USED FOR UNKNOWN INDICATION
     Dosage: 300 MILLIGRAM, QD
     Route: 065
     Dates: start: 20190215, end: 20190517
  6. DICLOFENAC SODIUM. [Concomitant]
     Active Substance: DICLOFENAC SODIUM
     Indication: OSTEOARTHRITIS
     Dosage: 1 DOSAGE FORM, QD, UP TO 3 DAYS
     Dates: start: 20190621
  7. HYDROXOCOBALAMIN [Concomitant]
     Active Substance: HYDROXOCOBALAMIN
     Dosage: 3 DOSAGE FORM, MONTHLY
     Dates: start: 20160816

REACTIONS (2)
  - Facial pain [Recovered/Resolved]
  - Toothache [Recovered/Resolved]

NARRATIVE: CASE EVENT DATE: 20190426
